FAERS Safety Report 7072928-8 (Version None)
Quarter: 2010Q4

REPORT INFORMATION
  Report Type: 
  Country: None (occurrence: None)
  Receive Date: 20101029
  Receipt Date: 20100430
  Transmission Date: 20110411
  Serious: No
  Sender: FDA-Public Use
  Company Number: A0852983A

PATIENT
  Age: 88 Year
  Sex: Female

DRUGS (8)
  1. ADVAIR DISKUS 100/50 [Suspect]
     Indication: ASTHMA
     Route: 055
  2. ASPIRIN [Concomitant]
  3. IRON [Concomitant]
  4. BLOOD PRESSURE MEDICATION [Concomitant]
  5. VITAMINS [Concomitant]
  6. NEXIUM [Concomitant]
  7. VALTREX [Concomitant]
  8. EYE DROPS [Concomitant]

REACTIONS (4)
  - NAUSEA [None]
  - PRODUCT QUALITY ISSUE [None]
  - SOMNOLENCE [None]
  - VOMITING [None]
